FAERS Safety Report 6421711-2 (Version None)
Quarter: 2009Q4

REPORT INFORMATION
  Report Type: 
  Country: None (occurrence: None)
  Receive Date: 20091030
  Receipt Date: 20091020
  Transmission Date: 20100525
  Serious: Yes (Hospitalization, Other)
  Sender: FDA-Public Use
  Company Number: CA-ABBOTT-09P-028-0603985-00

PATIENT
  Sex: Female
  Weight: 65.83 kg

DRUGS (7)
  1. HUMIRA [Suspect]
     Indication: CROHN'S DISEASE
     Route: 058
     Dates: start: 20081014
  2. BENADRYL [Concomitant]
     Indication: DRUG USE FOR UNKNOWN INDICATION
  3. TYLENOL [Concomitant]
     Indication: DRUG USE FOR UNKNOWN INDICATION
  4. FIORINAL [Concomitant]
     Indication: DRUG USE FOR UNKNOWN INDICATION
  5. MAXALT [Concomitant]
     Indication: DRUG USE FOR UNKNOWN INDICATION
  6. NEXIUM [Concomitant]
     Indication: DRUG USE FOR UNKNOWN INDICATION
  7. ATIVAN [Concomitant]
     Indication: DRUG USE FOR UNKNOWN INDICATION

REACTIONS (5)
  - ABDOMINAL PAIN [None]
  - INJECTION SITE REACTION [None]
  - INJECTION SITE SWELLING [None]
  - LOSS OF CONSCIOUSNESS [None]
  - POSTOPERATIVE ADHESION [None]
